FAERS Safety Report 19950710 (Version 3)
Quarter: 2023Q4

REPORT INFORMATION
  Report Type: Report from Study
  Country: AT (occurrence: AT)
  Receive Date: 20211013
  Receipt Date: 20231101
  Transmission Date: 20240109
  Serious: Yes (Other)
  Sender: FDA-Public Use
  Company Number: AT-CELLTRION HEALTHCARE HUNGARY KFT-2021AT008243

PATIENT

DRUGS (33)
  1. PACLITAXEL [Suspect]
     Active Substance: PACLITAXEL
     Indication: Breast cancer
     Dosage: 113.69 MILLIGRAM, QW (RECENT DOSE 14/SEP/2018)
     Route: 042
     Dates: start: 20180810
  2. TRASTUZUMAB [Suspect]
     Active Substance: TRASTUZUMAB
     Indication: Breast cancer
     Dosage: 154 MG EVERY 3 WEEKS
     Route: 042
     Dates: start: 20190704, end: 20190704
  3. LETROZOLE [Suspect]
     Active Substance: LETROZOLE
     Indication: Breast cancer
     Dosage: 2.5 MILLIGRAM, QD (ON 13/JUN/2019, RECENT DOSE)
     Route: 048
     Dates: start: 20181029
  4. TAMOXIFEN [Suspect]
     Active Substance: TAMOXIFEN
     Indication: Breast cancer
     Dosage: 20 MILLIGRAM
     Route: 048
     Dates: start: 20190819, end: 20190827
  5. FULVESTRANT [Suspect]
     Active Substance: FULVESTRANT
     Indication: Breast cancer
     Dosage: 500 MILLIGRAM, Q4WEEKS
     Route: 030
     Dates: start: 20190919, end: 20191112
  6. TRASTUZUMAB [Suspect]
     Active Substance: TRASTUZUMAB
     Indication: Breast cancer
     Dosage: 384 MG EVERY 3 WEEKS (MOST RECENT19/AUG/2019)
     Route: 042
     Dates: start: 20180810, end: 20180831
  7. TRASTUZUMAB [Suspect]
     Active Substance: TRASTUZUMAB
     Dosage: 384 MILLIGRAM, Q3D
     Route: 042
     Dates: start: 20180928, end: 20180928
  8. TRASTUZUMAB [Suspect]
     Active Substance: TRASTUZUMAB
     Dosage: 276 MILLIGRAM, Q3D
     Route: 042
     Dates: start: 20181019, end: 20181019
  9. PACLITAXEL [Suspect]
     Active Substance: PACLITAXEL
     Indication: Breast cancer
     Dosage: 142.11 MG, EVERY 1 WEEK
     Route: 042
     Dates: start: 20180928, end: 20181005
  10. PALBOCICLIB [Suspect]
     Active Substance: PALBOCICLIB
     Indication: Breast cancer
     Dosage: 125 MILLIGRAM (MOST RECENT DOSE 18/OCT/2019)
     Route: 048
     Dates: start: 20190919
  11. PERTUZUMAB [Suspect]
     Active Substance: PERTUZUMAB
     Indication: Breast cancer
     Dosage: 840 MILLIGRAM EVERY 3 WEEKS
     Route: 042
     Dates: start: 20180810
  12. ADO-TRASTUZUMAB EMTANSINE [Suspect]
     Active Substance: ADO-TRASTUZUMAB EMTANSINE
     Indication: Breast cancer
     Dosage: 154 MILLIGRAM, 154 MG EVERY 3 WEEKS
     Route: 042
     Dates: start: 20190704, end: 20190704
  13. Guttalax [Concomitant]
     Dosage: UNK
     Route: 065
     Dates: start: 20191115
  14. CEOLAT [Concomitant]
     Dosage: UNK
     Route: 065
     Dates: start: 20191115
  15. TRAZODONE HYDROCHLORIDE [Concomitant]
     Active Substance: TRAZODONE HYDROCHLORIDE
     Dosage: UNK
     Route: 065
  16. MORPHINE [Concomitant]
     Active Substance: MORPHINE
     Indication: Dyspnoea
     Dosage: UNK
     Route: 065
     Dates: start: 20191111
  17. ANTIFLAT [Concomitant]
     Dosage: UNK
     Route: 065
     Dates: start: 20181126
  18. Paspertin [Concomitant]
     Indication: Nausea
     Dosage: UNK
     Route: 065
     Dates: start: 20191108, end: 20191115
  19. Temesta [Concomitant]
     Dosage: UNK
     Route: 065
  20. NOVALGINA [Concomitant]
     Active Substance: ACETAMINOPHEN\CAFFEINE
     Dosage: UNK
     Route: 065
     Dates: start: 20181126, end: 20191103
  21. KONAKION [Concomitant]
     Active Substance: PHYTONADIONE
     Dosage: UNK
     Route: 065
     Dates: start: 20191115
  22. PANTOPRAZOLE SODIUM [Concomitant]
     Active Substance: PANTOPRAZOLE SODIUM
     Indication: Abdominal pain upper
     Dosage: UNK
     Route: 065
     Dates: start: 20181109, end: 20191101
  23. MEFENAMIC ACID [Concomitant]
     Active Substance: MEFENAMIC ACID
     Indication: Arthralgia
     Dosage: UNK
     Route: 065
     Dates: start: 20180914
  24. AVELOX [Concomitant]
     Active Substance: MOXIFLOXACIN HYDROCHLORIDE
     Indication: Osteonecrosis of jaw
     Dosage: UNK
     Route: 065
     Dates: start: 20190919, end: 20191101
  25. DEXIBUPROFEN [Concomitant]
     Active Substance: DEXIBUPROFEN
     Indication: Osteonecrosis of jaw
     Dosage: UNK
     Route: 065
     Dates: start: 20190725, end: 20191015
  26. DEXAMETHASONE [Concomitant]
     Active Substance: DEXAMETHASONE
     Dosage: UNK
     Route: 065
     Dates: start: 20191115
  27. POLYETHYLENE GLYCOL 3350\POTASSIUM CHLORIDE\SODIUM BICARBONATE\SODIUM [Concomitant]
     Active Substance: POLYETHYLENE GLYCOL 3350\POTASSIUM CHLORIDE\SODIUM BICARBONATE\SODIUM CHLORIDE
     Dosage: UNK
     Route: 065
     Dates: start: 20191115
  28. CIPROFLOXACIN [Concomitant]
     Active Substance: CIPROFLOXACIN
     Indication: Gastroenteritis radiation
     Dosage: UNK
     Route: 065
     Dates: start: 20181118
  29. CALCIUM CHLORIDE\SODIUM CHLORIDE\SODIUM PHOSPHATE, DIBASIC, ANHYDROUS\ [Concomitant]
     Active Substance: CALCIUM CHLORIDE\SODIUM CHLORIDE\SODIUM PHOSPHATE, DIBASIC, ANHYDROUS\SODIUM PHOSPHATE, MONOBASIC, A
     Indication: Mucosal inflammation
     Dosage: UNK
     Route: 065
     Dates: start: 20180921
  30. LOPERAMIDE HYDROCHLORIDE [Concomitant]
     Active Substance: LOPERAMIDE HYDROCHLORIDE
     Indication: Diarrhoea
     Dosage: UNK
     Route: 065
     Dates: start: 20181127
  31. LASIX [Concomitant]
     Active Substance: FUROSEMIDE
     Indication: Oedema peripheral
     Dosage: UNK
     Route: 065
     Dates: start: 20191106, end: 20191115
  32. MYCOSTATIN [Concomitant]
     Active Substance: NYSTATIN
     Indication: Mucosal inflammation
     Dosage: UNK
     Route: 065
     Dates: start: 20190819
  33. TAZOBACTAM [Concomitant]
     Active Substance: TAZOBACTAM
     Indication: Infection
     Dosage: UNK
     Route: 065
     Dates: start: 20191102, end: 20191113

REACTIONS (5)
  - Ascites [Recovering/Resolving]
  - White blood cell count decreased [Recovered/Resolved]
  - Underdose [Unknown]
  - Overdose [Unknown]
  - Neutrophil count decreased [Recovered/Resolved]

NARRATIVE: CASE EVENT DATE: 20191004
